FAERS Safety Report 9098493 (Version 2)
Quarter: 2013Q2

REPORT INFORMATION
  Report Type: Report from Study
  Country: JP (occurrence: JP)
  Receive Date: 20130213
  Receipt Date: 20130404
  Transmission Date: 20140414
  Serious: Yes (Hospitalization, Other)
  Sender: FDA-Public Use
  Company Number: PHHY2013JP012879

PATIENT
  Age: 64 Year
  Sex: Male
  Weight: 56 kg

DRUGS (18)
  1. AFINITOR [Suspect]
     Indication: METASTATIC RENAL CELL CARCINOMA
     Dosage: 10 MG, DAILY
     Route: 048
     Dates: start: 20100710, end: 20100928
  2. MUCODYNE [Concomitant]
     Dosage: 1500 MG
     Route: 048
     Dates: start: 20100713
  3. CLEANAL [Concomitant]
     Dosage: 600 MG
     Route: 048
     Dates: start: 20100713
  4. NICHICODE [Concomitant]
     Dosage: 9 G
     Route: 048
     Dates: start: 20100713, end: 20100715
  5. CEFZON [Concomitant]
     Dosage: 300 MG
     Route: 048
     Dates: start: 20100715, end: 20100720
  6. CALTAN [Concomitant]
     Dosage: 1500 MG
     Route: 048
     Dates: start: 20100716
  7. LANIRAPID [Concomitant]
     Dosage: 0.05 MG
     Route: 048
     Dates: start: 20100716
  8. LANIRAPID [Concomitant]
     Dosage: 0.25 MG
     Route: 048
  9. BLOPRESS [Concomitant]
     Dosage: 8 MG
     Route: 048
     Dates: start: 20100716
  10. GASTER D [Concomitant]
     Dosage: 20 MG
     Route: 048
     Dates: start: 20100716
  11. LACTOSE [Concomitant]
     Dosage: 0.5 MG
     Route: 048
     Dates: start: 20100716
  12. AMOBAN [Concomitant]
     Dosage: 7.5 MG
     Route: 048
     Dates: start: 20100716
  13. MAINTATE [Concomitant]
     Dosage: 2.5 MG
     Route: 048
     Dates: start: 20100716
  14. ADALAT [Concomitant]
     Dosage: 10 MG
     Route: 048
     Dates: start: 20100718
  15. ZYLORIC [Concomitant]
     Dosage: 100 MG
     Route: 048
     Dates: start: 20100722
  16. LOXONIN [Concomitant]
     Dosage: 60 MG
     Route: 048
     Dates: start: 20100803
  17. OMEPRAL [Concomitant]
     Dosage: 10 MG
     Route: 048
     Dates: start: 20100803
  18. GENINAX [Concomitant]
     Dosage: 200 MG
     Route: 048
     Dates: start: 20100804, end: 20100810

REACTIONS (12)
  - Malignant neoplasm progression [Not Recovered/Not Resolved]
  - Metastatic renal cell carcinoma [Not Recovered/Not Resolved]
  - Interstitial lung disease [Recovered/Resolved]
  - Aortic valve incompetence [Recovered/Resolved]
  - Concomitant disease aggravated [Unknown]
  - Tracheal obstruction [Unknown]
  - Tracheal stenosis [Unknown]
  - Metastases to the mediastinum [Unknown]
  - Cardiac failure [Recovered/Resolved]
  - Pleural effusion [Recovered/Resolved]
  - Dyspnoea [Recovering/Resolving]
  - Malaise [Unknown]
